FAERS Safety Report 14633222 (Version 3)
Quarter: 2018Q1

REPORT INFORMATION
  Report Type: Report from Study
  Country: KR (occurrence: KR)
  Receive Date: 20180313
  Receipt Date: 20180328
  Transmission Date: 20180509
  Serious: Yes (Life-Threatening, Hospitalization, Other)
  Sender: FDA-Public Use
  Company Number: KR-JAZZ-2018-KR-003595

PATIENT
  Age: 10 Year
  Sex: Female
  Weight: 27.8 kg

DRUGS (80)
  1. PENIRAMIN [Concomitant]
     Indication: TRANSFUSION
     Dosage: 2.64 MG, QD
     Route: 042
     Dates: start: 20180211
  2. VISIPAQUE [Concomitant]
     Active Substance: IODIXANOL
     Indication: PRODUCT USED FOR UNKNOWN INDICATION
     Dosage: 650 ML, QD
     Route: 042
     Dates: start: 20180224, end: 20180226
  3. TRAMADOL HYDROCHLORIDE. [Concomitant]
     Active Substance: TRAMADOL HYDROCHLORIDE
     Indication: ABDOMINAL PAIN
     Dosage: 25 MG, QD
     Route: 042
     Dates: start: 20180225, end: 20180225
  4. FENTANYL. [Concomitant]
     Active Substance: FENTANYL
     Indication: ABDOMINAL PAIN
     Dosage: 1 MG, QD
     Route: 042
     Dates: start: 20180226, end: 20180226
  5. MIDAZOLAM MALEATE [Concomitant]
     Active Substance: MIDAZOLAM MALEATE
     Dosage: 7.5 MG, QD
     Route: 042
     Dates: start: 20180228, end: 20180228
  6. KCL [Concomitant]
     Active Substance: POTASSIUM CHLORIDE
     Indication: HYPOKALAEMIA
     Dosage: 20 MEQ, QD
     Route: 042
     Dates: start: 20180227
  7. DEFITELIO [Suspect]
     Active Substance: DEFIBROTIDE SODIUM
     Dosage: 22.5 MG, Q8H
     Route: 042
     Dates: start: 20180302, end: 20180314
  8. KETAMINE [Concomitant]
     Active Substance: KETAMINE
     Indication: SEDATION
     Dosage: 15 MG, FIVE TIMES/DAY
     Route: 042
     Dates: start: 20180225, end: 20180226
  9. IV-GLOBULIN [Concomitant]
     Indication: PROPHYLAXIS AGAINST GRAFT VERSUS HOST DISEASE
     Dosage: 12000 MG, QD
     Route: 042
     Dates: start: 20180218, end: 20180218
  10. ANTITHROMBINUM LLL HUMANUM [Concomitant]
     Indication: ANTITHROMBIN III DEFICIENCY
     Dosage: 1000 IU, QD
     Route: 042
     Dates: start: 20180222, end: 20180222
  11. ACETAMINOPHEN. [Concomitant]
     Active Substance: ACETAMINOPHEN
     Indication: ABDOMINAL PAIN
     Dosage: 350 MG, QD
     Route: 042
     Dates: start: 20180225
  12. MAGNESIUM [Concomitant]
     Active Substance: MAGNESIUM
     Indication: HYPOMAGNESAEMIA
     Dosage: 20 ML, QD
     Route: 042
     Dates: start: 20180211, end: 20180211
  13. ACICLOVIR [Concomitant]
     Active Substance: ACYCLOVIR
     Indication: ANTIVIRAL TREATMENT
     Dosage: 225 MG, TID
     Route: 042
     Dates: start: 20180211, end: 20180224
  14. FUROSEMIDE. [Concomitant]
     Active Substance: FUROSEMIDE
     Indication: DIURETIC THERAPY
     Dosage: 13.2 MG, PRN
     Route: 042
     Dates: start: 20180211, end: 20180220
  15. FUROSEMIDE. [Concomitant]
     Active Substance: FUROSEMIDE
     Dosage: 280 MG, QD
     Route: 042
     Dates: start: 20180302, end: 20180302
  16. MAXIBUPEN [Concomitant]
     Indication: PYREXIA
     Dosage: 300 MG, QD
     Route: 048
     Dates: start: 20180223, end: 20180223
  17. PENTAMIDINE ISETHIONATE. [Concomitant]
     Active Substance: PENTAMIDINE ISETHIONATE
     Indication: PROPHYLAXIS
     Dosage: 300 MG, QD
     Dates: start: 20180212, end: 20180212
  18. TAMIPOOL [Concomitant]
     Active Substance: VITAMINS
     Indication: PRODUCT USED FOR UNKNOWN INDICATION
     Dosage: 5 ML, QD
     Route: 042
     Dates: start: 20180211
  19. URANTAC [Concomitant]
     Indication: PROPHYLAXIS
     Dosage: 66 MG, BID
     Route: 042
     Dates: start: 20180211, end: 20180224
  20. VITAMIN K1 [Concomitant]
     Active Substance: PHYTONADIONE
     Indication: PROTHROMBIN LEVEL
     Dosage: 6.6 MG, QD
     Route: 042
     Dates: start: 20180212, end: 20180224
  21. ALBUMIN [Concomitant]
     Active Substance: ALBUMIN HUMAN
     Indication: HYPOALBUMINAEMIA
     Dosage: 100 ML, QD
     Route: 042
     Dates: start: 20180228, end: 20180228
  22. BOTROPASE [Concomitant]
     Active Substance: BATROXOBIN
     Indication: HAEMORRHAGE PROPHYLAXIS
     Dosage: 0.5 ML, BID
     Route: 042
     Dates: start: 20180227
  23. EPINEPHRINE. [Concomitant]
     Active Substance: EPINEPHRINE
     Indication: CARDIAC FAILURE
     Dosage: 1 MG, QD
     Route: 042
     Dates: start: 20180302, end: 20180302
  24. DEFITELIO [Suspect]
     Active Substance: DEFIBROTIDE SODIUM
     Indication: VENOOCCLUSIVE DISEASE
     Dosage: 22.5 MG, Q8H
     Route: 042
     Dates: start: 20180218, end: 20180225
  25. LIDOCAINE. [Concomitant]
     Active Substance: LIDOCAINE
     Indication: ENDOSCOPY
     Dosage: 15 MG, QD
     Route: 048
     Dates: start: 20180214
  26. EGLANDIN [Concomitant]
     Indication: VENOOCCLUSIVE DISEASE
     Dosage: 25 ?G, QD
     Route: 042
     Dates: start: 20180213, end: 20180219
  27. TRIZELE [Concomitant]
     Active Substance: METRONIDAZOLE
     Dosage: 500 MG, TID
     Route: 042
     Dates: start: 20180211, end: 20180221
  28. MAGNESIUM [Concomitant]
     Active Substance: MAGNESIUM
     Dosage: 20 ML, QD
     Route: 042
     Dates: start: 20180302, end: 20180302
  29. SPIRONOLACTONE. [Concomitant]
     Active Substance: SPIRONOLACTONE
     Indication: DIURETIC THERAPY
     Dosage: 25 MG, BID
     Route: 048
     Dates: start: 20180219, end: 20180226
  30. ALPIT [Concomitant]
     Indication: ABDOMINAL PAIN
     Dosage: 3.3 MG, BID
     Route: 042
     Dates: start: 20180211, end: 20180218
  31. DICKNOL [Concomitant]
     Indication: ABDOMINAL PAIN
     Dosage: 59.4 MG, UNK
     Route: 042
     Dates: start: 20180218
  32. FUROSEMIDE. [Concomitant]
     Active Substance: FUROSEMIDE
     Dosage: 260 MG, QD
     Route: 042
     Dates: start: 20180227, end: 20180227
  33. FUROSEMIDE. [Concomitant]
     Active Substance: FUROSEMIDE
     Dosage: 260 MG, QD
     Route: 042
     Dates: start: 20180301, end: 20180301
  34. TATHION [Concomitant]
     Active Substance: GLUTATHIONE
     Indication: PROPHYLAXIS
     Dosage: 100 MG, QD
     Route: 042
     Dates: start: 20180219
  35. URANTAC [Concomitant]
     Dosage: 30 MG, QD
     Route: 042
     Dates: start: 20180301
  36. MIDAZOLAM MALEATE [Concomitant]
     Active Substance: MIDAZOLAM MALEATE
     Dosage: 75 MG, QD
     Route: 042
     Dates: start: 20180226, end: 20180227
  37. MIDAZOLAM [Concomitant]
     Active Substance: MIDAZOLAM HYDROCHLORIDE
     Indication: SEDATION
     Dosage: 2.001 MG, QD
     Route: 042
     Dates: start: 20180214, end: 20180214
  38. URSODEOXYCHOLIC ACID [Concomitant]
     Active Substance: URSODIOL
     Indication: PROPHYLAXIS
     Dosage: 100 MG, TID
     Route: 048
     Dates: start: 20180220, end: 20180226
  39. URSODEOXYCHOLIC ACID [Concomitant]
     Active Substance: URSODIOL
     Dosage: 200 MG, TID
     Route: 048
     Dates: start: 20180301
  40. IV-GLOBULIN [Concomitant]
     Dosage: 12000 MG, QD
     Route: 042
     Dates: start: 20180304, end: 20180304
  41. KYTRIL [Concomitant]
     Active Substance: GRANISETRON HYDROCHLORIDE
     Indication: PRODUCT USED FOR UNKNOWN INDICATION
     Dosage: 3 MG, TID
     Route: 042
     Dates: start: 20180211, end: 20180219
  42. CIPOL [Concomitant]
     Dosage: 12 MG, QD
     Route: 042
     Dates: start: 20180228, end: 20180302
  43. FUROSEMIDE. [Concomitant]
     Active Substance: FUROSEMIDE
     Dosage: 240 MG, QD
     Route: 042
     Dates: start: 20180303, end: 20180303
  44. VITAMIN K1 [Concomitant]
     Active Substance: PHYTONADIONE
     Indication: PROTHROMBIN TIME PROLONGED
     Dosage: 10 MG, QD
     Route: 042
     Dates: start: 20180226
  45. EPINEPHRINE. [Concomitant]
     Active Substance: EPINEPHRINE
     Indication: PREOPERATIVE CARE
     Dosage: 1 MG, QD
     Route: 042
     Dates: start: 20180226, end: 20180226
  46. WINUF [Concomitant]
     Indication: PARENTERAL NUTRITION
     Dosage: 1085 ML, QD
     Route: 042
     Dates: start: 20180211, end: 20180221
  47. LEVOMELS [Concomitant]
     Indication: PROPHYLAXIS
     Dosage: 330 MG, TID
     Route: 042
     Dates: start: 20180218
  48. PANTOPRAZOLE SODIUM. [Concomitant]
     Active Substance: PANTOPRAZOLE SODIUM
     Indication: PROPHYLAXIS
     Dosage: 40 MG, QD
     Route: 042
     Dates: start: 20180211, end: 20180225
  49. CALCIUM CHLORIDE. [Concomitant]
     Active Substance: CALCIUM CHLORIDE
     Indication: PRODUCT USED FOR UNKNOWN INDICATION
     Dosage: 20 ML, QD
     Route: 042
     Dates: start: 20180226, end: 20180226
  50. ULTIVA [Concomitant]
     Active Substance: REMIFENTANIL HYDROCHLORIDE
     Indication: SEDATION
     Dosage: 1 MG, QD
     Route: 042
     Dates: start: 20180226, end: 20180226
  51. ULTIVA [Concomitant]
     Active Substance: REMIFENTANIL HYDROCHLORIDE
     Dosage: 7.5 MG, QD
     Route: 042
     Dates: start: 20180226
  52. MIDAZOLAM MALEATE [Concomitant]
     Active Substance: MIDAZOLAM MALEATE
     Indication: SEDATION
     Dosage: 2.49 MG, QD
     Route: 042
     Dates: start: 20180225, end: 20180226
  53. MIDAZOLAM MALEATE [Concomitant]
     Active Substance: MIDAZOLAM MALEATE
     Dosage: 150 MG, QD
     Route: 042
     Dates: start: 20180228, end: 20180305
  54. TOBUREX [Concomitant]
     Indication: CARDIAC FAILURE
     Dosage: 500 MG, QD
     Route: 042
     Dates: start: 20180226, end: 20180226
  55. LAMINA-G [Concomitant]
     Indication: GASTROINTESTINAL DISORDER
     Dosage: 50 MG, QD
     Route: 048
     Dates: start: 20180211, end: 20180212
  56. MEROPENEM. [Concomitant]
     Active Substance: MEROPENEM
     Indication: ANTIBIOTIC THERAPY
     Dosage: 480 MG, TID
     Route: 042
     Dates: start: 20180211
  57. ANTITHROMBINUM LLL HUMANUM [Concomitant]
     Dosage: 1500 IU, QD
     Route: 042
     Dates: start: 20180302, end: 20180302
  58. ANTITHROMBINUM LLL HUMANUM [Concomitant]
     Dosage: 500 IU, QD
     Route: 042
     Dates: start: 20180303, end: 20180304
  59. SPATAM [Concomitant]
     Indication: PRODUCT USED FOR UNKNOWN INDICATION
     Dosage: 300 MG, QD
     Route: 042
     Dates: start: 20180224, end: 20180226
  60. DEXTRAN 70 W/HYPROMELLOSE [Concomitant]
     Indication: PRODUCT USED FOR UNKNOWN INDICATION
     Dosage: 30 MG, QD
     Route: 047
     Dates: start: 20180302, end: 20180302
  61. HYDRALAZINE [Concomitant]
     Active Substance: HYDRALAZINE HYDROCHLORIDE
     Indication: HYPERTENSION
     Dosage: 5 MG, QD
     Route: 042
     Dates: start: 20180304, end: 20180304
  62. HYRUAN [Concomitant]
     Indication: HAEMATURIA
     Dosage: 10 MG, BID
     Dates: start: 20180301
  63. LIPIODOL [Concomitant]
     Active Substance: ETHIODIZED OIL
     Indication: PRODUCT USED FOR UNKNOWN INDICATION
     Dosage: 10 ML, QD
     Route: 042
     Dates: start: 20180226, end: 20180226
  64. GASOCOL [Concomitant]
     Indication: ENDOSCOPY
     Dosage: UNK
     Route: 048
     Dates: start: 20180214, end: 20180214
  65. KETAMINE [Concomitant]
     Active Substance: KETAMINE
     Dosage: 15MG SIX TIMES/DAY
     Route: 042
     Dates: start: 20180225, end: 20180225
  66. DOPRAMINE [Concomitant]
     Indication: DIURETIC THERAPY
     Dosage: 110 MG, QD
     Route: 042
     Dates: start: 20180221
  67. MAGNESIUM [Concomitant]
     Active Substance: MAGNESIUM
     Dosage: 20 ML, QD
     Route: 042
     Dates: start: 20180304, end: 20180304
  68. MYCAMINE [Concomitant]
     Active Substance: MICAFUNGIN SODIUM
     Indication: ANTIFUNGAL TREATMENT
     Dosage: 50 MG, QD
     Route: 042
     Dates: start: 20180211, end: 20180220
  69. MIDAZOLAM MALEATE [Concomitant]
     Active Substance: MIDAZOLAM MALEATE
     Dosage: 9 MG, QD
     Route: 042
     Dates: start: 20180303, end: 20180303
  70. NOREPINEPHRINE. [Concomitant]
     Active Substance: NOREPINEPHRINE
     Indication: SEDATION
     Dosage: 10 MG, QD
     Route: 042
     Dates: start: 20180226, end: 20180226
  71. ESMERON [Concomitant]
     Active Substance: ROCURONIUM BROMIDE
     Indication: SEDATION
     Dosage: 50 MG, QD
     Route: 042
     Dates: start: 20180226, end: 20180226
  72. LIVERHEALTH G [Concomitant]
     Indication: PROPHYLAXIS
     Dosage: 25 MG, TID
     Route: 048
     Dates: start: 20180220, end: 20180226
  73. KETAMINE [Concomitant]
     Active Substance: KETAMINE
     Dosage: 15 MG, TID
     Route: 042
     Dates: start: 20180226, end: 20180226
  74. FENTADUR [Concomitant]
     Indication: ABDOMINAL PAIN
     Dosage: 12 ?G, PER HOUR
     Dates: start: 20180211, end: 20180213
  75. DOPRAMINE [Concomitant]
     Dosage: 375 MG, QD
     Route: 042
     Dates: start: 20180301, end: 20180301
  76. ANTITHROMBINUM LLL HUMANUM [Concomitant]
     Dosage: 1500 IU, QD
     Route: 042
     Dates: start: 20180227, end: 20180227
  77. CIPOL [Concomitant]
     Indication: IMMUNOSUPPRESSION
     Dosage: 45 MG, QD
     Route: 042
     Dates: start: 20180211, end: 20180212
  78. FUROSEMIDE. [Concomitant]
     Active Substance: FUROSEMIDE
     Dosage: 400 MG, QD
     Route: 042
     Dates: start: 20180228, end: 20180228
  79. FUROSEMIDE. [Concomitant]
     Active Substance: FUROSEMIDE
     Dosage: 20 MG, QD
     Route: 042
     Dates: start: 20180304, end: 20180304
  80. ZYLORIC [Concomitant]
     Active Substance: ALLOPURINOL
     Indication: BLOOD LACTATE DEHYDROGENASE INCREASED
     Dosage: 100 MG, BID
     Route: 048
     Dates: start: 20180219

REACTIONS (4)
  - Peritoneal haemorrhage [Recovered/Resolved]
  - Oedema [Recovered/Resolved]
  - Pericardial effusion [Recovered/Resolved]
  - Pleural effusion [Recovered/Resolved]

NARRATIVE: CASE EVENT DATE: 20180223
